FAERS Safety Report 12627731 (Version 1)
Quarter: 2016Q3

REPORT INFORMATION
  Report Type: Spontaneous
  Country: FR (occurrence: FR)
  Receive Date: 20160805
  Receipt Date: 20160805
  Transmission Date: 20161109
  Serious: Yes (Hospitalization)
  Sender: FDA-Public Use
  Company Number: FR-ASTRAZENECA-2016SE82364

PATIENT
  Age: 20120 Day
  Sex: Male

DRUGS (13)
  1. TEMERIT [Concomitant]
     Active Substance: NEBIVOLOL
     Dates: start: 20160623
  2. NAPROXENE [Concomitant]
     Active Substance: NAPROXEN
     Dates: start: 20160613
  3. ACUPAN [Concomitant]
     Active Substance: NEFOPAM HYDROCHLORIDE
     Dates: start: 20160622, end: 20160627
  4. ISOPTIN [Concomitant]
     Active Substance: VERAPAMIL HYDROCHLORIDE
  5. TRAMADOL. [Concomitant]
     Active Substance: TRAMADOL
     Dates: start: 20160622
  6. COLCHIMAX [Suspect]
     Active Substance: COLCHICINE\DICYCLOMINE HYDROCHLORIDE
     Indication: TENOSYNOVITIS
     Route: 048
     Dates: start: 20160620, end: 20160623
  7. COTAREG [Concomitant]
     Active Substance: HYDROCHLOROTHIAZIDE\VALSARTAN
     Indication: HYPERTENSION
  8. TEMERIT [Concomitant]
     Active Substance: NEBIVOLOL
     Dates: end: 201601
  9. SOLUPRED [Concomitant]
     Active Substance: PREDNISOLONE
     Dates: start: 20160614
  10. VOLTARENE [Suspect]
     Active Substance: DICLOFENAC SODIUM
     Indication: TENOSYNOVITIS
     Route: 048
     Dates: start: 20160616, end: 20160620
  11. DAFALGAN CODEINE [Suspect]
     Active Substance: ACETAMINOPHEN\CODEINE PHOSPHATE
     Indication: TENOSYNOVITIS
     Route: 048
     Dates: start: 20160616, end: 20160621
  12. TRAMADOL. [Concomitant]
     Active Substance: TRAMADOL
     Dates: start: 20160613
  13. INEXIUM [Suspect]
     Active Substance: ESOMEPRAZOLE
     Indication: PROPHYLAXIS AGAINST GASTROINTESTINAL ULCER
     Route: 048
     Dates: start: 20160616, end: 20160620

REACTIONS (4)
  - Mixed liver injury [Recovering/Resolving]
  - Hallucination [Unknown]
  - Therapy cessation [Unknown]
  - Infective tenosynovitis [Unknown]

NARRATIVE: CASE EVENT DATE: 20160620
